FAERS Safety Report 8427938-2 (Version None)
Quarter: 2012Q2

REPORT INFORMATION
  Report Type: 
  Country: None (occurrence: None)
  Receive Date: 20120611
  Receipt Date: 20120531
  Transmission Date: 20120825
  Serious: Yes (Hospitalization)
  Sender: FDA-Public Use
  Company Number: US-ASTRAZENECA-2012SE23091

PATIENT
  Age: 67 Year
  Sex: Female
  Weight: 65.8 kg

DRUGS (24)
  1. SEROQUEL [Suspect]
     Route: 048
     Dates: start: 20010118, end: 20010801
  2. CHLORTOMAZINE [Concomitant]
     Dosage: DAILY
     Route: 048
  3. DICYCLOMINE [Concomitant]
     Route: 048
  4. DEPAKOTE [Concomitant]
     Indication: CONVULSION
     Route: 048
  5. PROZAC [Concomitant]
     Dosage: AT NIGHT
     Route: 048
  6. PRECOSE [Concomitant]
  7. SEROQUEL [Suspect]
     Route: 048
     Dates: start: 20010809, end: 20110101
  8. NEURONTIN [Concomitant]
     Indication: ARTHRITIS
     Route: 048
  9. POTASSIUM [Concomitant]
     Indication: DEHYDRATION
     Route: 048
  10. BUSPAR [Concomitant]
     Dosage: DAILY
     Route: 048
  11. SERZONE [Concomitant]
     Dosage: 75 MG AT MORNING AND 300 MG AT NIGHT
  12. SERZONE [Concomitant]
     Dates: start: 20010809
  13. LUTEIN [Concomitant]
     Indication: MEDICAL DIET
     Route: 048
  14. ZINC ACETATE [Concomitant]
     Indication: MINERAL SUPPLEMENTATION
     Route: 048
  15. ZYPREXA [Concomitant]
     Dates: start: 19971120
  16. SEROQUEL [Suspect]
     Indication: SCHIZOPHRENIA
     Route: 048
     Dates: start: 19990311, end: 20010101
  17. DIAZEPAM [Concomitant]
     Indication: SCHIZOPHRENIA
     Route: 048
  18. SEROQUEL [Suspect]
     Route: 048
     Dates: start: 20110101
  19. GINGER ROOT [Concomitant]
     Indication: MEDICAL DIET
     Route: 048
  20. VITAMIN D [Concomitant]
     Indication: VITAMIN SUPPLEMENTATION
     Route: 048
  21. OTHER MEDICATION [Concomitant]
  22. PRECOSE [Concomitant]
     Dates: start: 20010809
  23. ZYPREXA [Concomitant]
  24. SERZONE [Concomitant]
     Dates: start: 19990311

REACTIONS (8)
  - DRUG DOSE OMISSION [None]
  - DIABETES MELLITUS [None]
  - MICROCYTIC ANAEMIA [None]
  - BILE DUCT STONE [None]
  - ADVERSE EVENT [None]
  - MALAISE [None]
  - DEPRESSED MOOD [None]
  - TREMOR [None]
